FAERS Safety Report 7228300-0 (Version None)
Quarter: 2011Q1

REPORT INFORMATION
  Report Type: 
  Country: None (occurrence: None)
  Receive Date: 20110114
  Receipt Date: 20110110
  Transmission Date: 20110831
  Serious: Yes (Other)
  Sender: FDA-Public Use
  Company Number: US-US-EMD SERONO, INC.-233507J09USA

PATIENT
  Sex: Female

DRUGS (10)
  1. ZOCOR [Concomitant]
  2. PROTONIX [Concomitant]
  3. ELAVIL [Concomitant]
     Route: 048
  4. RITALIN [Suspect]
  5. PROVIGIL [Concomitant]
  6. TOPAMAX [Concomitant]
     Indication: CONVULSION
     Route: 048
     Dates: start: 20040101
  7. KLONOPIN [Concomitant]
     Dosage: ONE AND A HALF
     Route: 048
  8. TOPAMAX [Concomitant]
     Indication: MIGRAINE
  9. REBIF [Suspect]
     Indication: MULTIPLE SCLEROSIS
     Route: 058
     Dates: start: 20091016, end: 20090101
  10. REBIF [Suspect]
     Route: 058
     Dates: start: 20090101, end: 20100427

REACTIONS (8)
  - MOVEMENT DISORDER [None]
  - LIVER FUNCTION TEST ABNORMAL [None]
  - OEDEMA PERIPHERAL [None]
  - FALL [None]
  - CONVULSION [None]
  - ABDOMINAL PAIN [None]
  - INJURY [None]
  - WEIGHT INCREASED [None]
